FAERS Safety Report 17868963 (Version 2)
Quarter: 2020Q4

REPORT INFORMATION
  Report Type: Spontaneous
  Country: US (occurrence: US)
  Receive Date: 20200608
  Receipt Date: 20201009
  Transmission Date: 20210113
  Serious: Yes (Hospitalization, Other)
  Sender: FDA-Public Use
  Company Number: US-JNJFOC-20200600088

PATIENT

DRUGS (1)
  1. CLEAN AND CLEAR ESSENTIALS DEEP CLEANING ASTRINGENT [Suspect]
     Active Substance: SALICYLIC ACID
     Indication: ACCIDENTAL EXPOSURE TO PRODUCT
     Dosage: VERY STRONG AMOUNT
     Route: 047
     Dates: start: 20200526

REACTIONS (6)
  - Anxiety [Recovered/Resolved]
  - Accidental exposure to product [Not Recovered/Not Resolved]
  - Application site nodule [Unknown]
  - Application site reaction [Unknown]
  - Corneal abrasion [Not Recovered/Not Resolved]
  - Eye discharge [Not Recovered/Not Resolved]

NARRATIVE: CASE EVENT DATE: 2020
